FAERS Safety Report 22328099 (Version 1)
Quarter: 2023Q2

REPORT INFORMATION
  Report Type: Spontaneous
  Country: US (occurrence: US)
  Receive Date: 20230516
  Receipt Date: 20230516
  Transmission Date: 20230721
  Serious: Yes (Life-Threatening, Hospitalization)
  Sender: FDA-Public Use
  Company Number: US-MALLINCKRODT-MNK202301663

PATIENT
  Age: 32 Year
  Sex: Female

DRUGS (3)
  1. UVADEX [Suspect]
     Active Substance: METHOXSALEN
     Indication: Graft versus host disease
     Dosage: UNKNOWN
     Route: 050
     Dates: start: 20211214, end: 20211216
  2. UVADEX [Suspect]
     Active Substance: METHOXSALEN
     Dosage: TWICE WEEKLY
     Route: 050
     Dates: start: 20211122, end: 20211213
  3. HEPARIN [Concomitant]
     Active Substance: HEPARIN SODIUM
     Indication: Anticoagulant therapy
     Dosage: 10,000 UNITS IN 500ML NACL

REACTIONS (3)
  - Air embolism [Recovered/Resolved]
  - Wrong technique in device usage process [Unknown]
  - Product use in unapproved indication [Unknown]

NARRATIVE: CASE EVENT DATE: 20211122
